FAERS Safety Report 17895061 (Version 9)
Quarter: 2022Q1

REPORT INFORMATION
  Report Type: Spontaneous
  Country: US (occurrence: US)
  Receive Date: 20200615
  Receipt Date: 20220316
  Transmission Date: 20220424
  Serious: Yes (Other)
  Sender: FDA-Public Use
  Company Number: US-PFIZER INC-2020198085

PATIENT
  Age: 89 Year
  Sex: Female
  Weight: 72.57 kg

DRUGS (6)
  1. XALKORI [Suspect]
     Active Substance: CRIZOTINIB
     Indication: Lung neoplasm malignant
     Dosage: 200 MG, 2X/DAY (200MG CAPSULE BY MOUTH, 1 CAPSULE IN THE MORNING)
     Route: 048
     Dates: start: 202005, end: 2020
  2. XALKORI [Suspect]
     Active Substance: CRIZOTINIB
     Dosage: 200 MG, 1X/DAY (200 MG BY MOUTH AT NIGHT)
     Route: 048
     Dates: start: 2020
  3. FUROSEMIDE [Concomitant]
     Active Substance: FUROSEMIDE
     Indication: Fluid imbalance
     Dosage: 20 MG, DAILY
     Dates: start: 202008
  4. FUROSEMIDE [Concomitant]
     Active Substance: FUROSEMIDE
     Indication: Fluid retention
     Dosage: 40 MG
  5. POTASSIUM [Concomitant]
     Active Substance: POTASSIUM
     Indication: Fluid imbalance
     Dosage: UNK
  6. POTASSIUM [Concomitant]
     Active Substance: POTASSIUM
     Indication: Fluid retention

REACTIONS (18)
  - Oedema peripheral [Recovering/Resolving]
  - Acne [Unknown]
  - Asthenia [Unknown]
  - Ageusia [Not Recovered/Not Resolved]
  - Anosmia [Not Recovered/Not Resolved]
  - Cough [Unknown]
  - Diarrhoea [Unknown]
  - Dry mouth [Not Recovered/Not Resolved]
  - Dry throat [Not Recovered/Not Resolved]
  - Fatigue [Recovering/Resolving]
  - Gait disturbance [Recovering/Resolving]
  - Malaise [Not Recovered/Not Resolved]
  - Pain [Not Recovered/Not Resolved]
  - Productive cough [Unknown]
  - Rash erythematous [Not Recovered/Not Resolved]
  - Road traffic accident [Unknown]
  - Skin disorder [Not Recovered/Not Resolved]
  - Intentional product use issue [Unknown]

NARRATIVE: CASE EVENT DATE: 20200101
